FAERS Safety Report 6863416-X (Version None)
Quarter: 2010Q3

REPORT INFORMATION
  Report Type: 
  Country: None (occurrence: None)
  Receive Date: 20100721
  Receipt Date: 20100714
  Transmission Date: 20110219
  Serious: Yes (Other)
  Sender: FDA-Public Use
  Company Number: US-JNJFOC-20100500719

PATIENT

DRUGS (3)
  1. LEVAQUIN [Suspect]
     Indication: BRONCHITIS
     Route: 048
  2. LEVAQUIN [Suspect]
     Indication: PNEUMONIA
     Route: 048
  3. METHYLPREDNISOLONE [Suspect]
     Indication: BRONCHITIS
     Route: 065

REACTIONS (2)
  - TENDON RUPTURE [None]
  - TENOSYNOVITIS [None]
